FAERS Safety Report 5715364-6 (Version None)
Quarter: 2008Q2

REPORT INFORMATION
  Report Type: 
  Country: None (occurrence: None)
  Receive Date: 20080422
  Receipt Date: 20080414
  Transmission Date: 20081010
  Serious: No
  Sender: FDA-Public Use
  Company Number: 20085026

PATIENT
  Sex: Female

DRUGS (9)
  1. LIORESAL [Suspect]
     Indication: MUSCLE SPASTICITY
     Dosage: 300-1760 MCG, DAILY, INTRATHECAL
     Route: 037
  2. NERUONTIN [Concomitant]
  3. LEXAPRO [Concomitant]
  4. ORAL BACLOFEN [Concomitant]
  5. DANTROLENE SODIUM [Concomitant]
  6. VALIUM [Concomitant]
  7. IBUPROFEN TABLETS [Concomitant]
  8. M.V.I. [Concomitant]
  9. URICHOLINE [Concomitant]

REACTIONS (4)
  - HYPERTONIA [None]
  - MUSCLE SPASTICITY [None]
  - OEDEMA PERIPHERAL [None]
  - PAIN [None]
